FAERS Safety Report 19813606 (Version 1)
Quarter: 2021Q3

REPORT INFORMATION
  Report Type: Spontaneous
  Country: US (occurrence: US)
  Receive Date: 20210909
  Receipt Date: 20210909
  Transmission Date: 20211014
  Serious: No
  Sender: FDA-Public Use
  Company Number: US-INCYTE CORPORATION-2021IN007848

PATIENT

DRUGS (2)
  1. JAKAFI [Suspect]
     Active Substance: RUXOLITINIB
     Indication: LIPODYSTROPHY ACQUIRED
  2. JAKAFI [Suspect]
     Active Substance: RUXOLITINIB
     Indication: CARDIORENAL SYNDROME
     Dosage: 20 MILLIGRAM, BID
     Route: 065
     Dates: start: 20210827

REACTIONS (1)
  - Off label use [Unknown]

NARRATIVE: CASE EVENT DATE: 20210827
